FAERS Safety Report 8093895-4 (Version None)
Quarter: 2012Q1

REPORT INFORMATION
  Report Type: 
  Country: None (occurrence: None)
  Receive Date: 20120131
  Receipt Date: 20120118
  Transmission Date: 20120608
  Serious: Yes (Death, Other)
  Sender: FDA-Public Use
  Company Number: PHHY2012BR004961

PATIENT
  Sex: Female

DRUGS (3)
  1. DIOVAN [Suspect]
     Dosage: 80 MG, UNK
  2. FORMOTEROL FUMARATE [Suspect]
  3. LESCOL XL [Suspect]

REACTIONS (5)
  - CHRONIC OBSTRUCTIVE PULMONARY DISEASE [None]
  - RENAL FAILURE [None]
  - HYPERTENSION [None]
  - CARDIAC ARREST [None]
  - CARDIAC FAILURE [None]
